FAERS Safety Report 9852535 (Version 1)
Quarter: 2014Q1

REPORT INFORMATION
  Report Type: Spontaneous
  Country: US (occurrence: None)
  Receive Date: 20140127
  Receipt Date: 20140127
  Transmission Date: 20141002
  Serious: Yes (Other)
  Sender: FDA-Public Use
  Company Number: 2010S1000566

PATIENT
  Age: 66 Year
  Sex: Male

DRUGS (9)
  1. FLEET PHOSPHO-SODA [Suspect]
     Indication: BOWEL PREPARATION
     Dosage: ORAL
     Route: 048
     Dates: start: 20070417
  2. IBUPROFEN (IBUPROFEN) [Concomitant]
  3. LOTREL (BENAZEPRIL HYDROCHLORIDE, AMLODIPINE BESILATE) [Concomitant]
  4. ASPIRIN (ACETYLSALICYLIC ACID) [Concomitant]
  5. TRICOR (FENOFIBRATE) [Concomitant]
  6. CENTRUM SILVER(ASCORBIC ACID, PYRIDOXINE HYDROCHLORIDE, BIOTIN, TOCOPHEROL, FOLIC ACID, THIAMINE HYDROCHLORIDE, COLECALCIFEROL, CYANOCOBALAMIN, RETINOL, RIBOFLAVIN, PHYTOMENADIONE, NICOTINAMIDE, CALCIUM PANTOTHENATE, IRON, MAGNESIUM, MANGANESE, MOLYBDENU [Concomitant]
  7. NEXIUM (ESOMEPRAZOLE MADNESIUM) [Concomitant]
  8. FISH OIL (FISH OIL) [Concomitant]
  9. HYDROCHLOROTHIAZIDE (HYDROCHLOROTHIAZIDE) [Concomitant]

REACTIONS (7)
  - Throat tightness [None]
  - Musculoskeletal discomfort [None]
  - Dehydration [None]
  - Renal failure chronic [None]
  - Angina unstable [None]
  - Renal failure acute [None]
  - Acute phosphate nephropathy [None]
